FAERS Safety Report 23858814 (Version 2)
Quarter: 2024Q2

REPORT INFORMATION
  Report Type: Report from Study
  Country: US (occurrence: US)
  Receive Date: 20240515
  Receipt Date: 20240528
  Transmission Date: 20240716
  Serious: Yes (Hospitalization, Other)
  Sender: FDA-Public Use
  Company Number: US-OTSUKA-2024_013141

PATIENT
  Age: 0 Year
  Sex: Male
  Weight: 2.32 kg

DRUGS (1)
  1. ARIPIPRAZOLE [Suspect]
     Active Substance: ARIPIPRAZOLE
     Indication: Product used for unknown indication
     Dosage: UNK
     Route: 064

REACTIONS (15)
  - Premature baby [Not Recovered/Not Resolved]
  - Breech presentation [Recovered/Resolved]
  - Bradycardia neonatal [Recovered/Resolved]
  - Thrombocytopenia neonatal [Recovered/Resolved]
  - Transient tachypnoea of the newborn [Recovered/Resolved]
  - Poor feeding infant [Recovered/Resolved]
  - Plagiocephaly [Recovered/Resolved]
  - Hyperbilirubinaemia neonatal [Recovered/Resolved]
  - Neonatal respiratory distress syndrome [Recovered/Resolved]
  - Eczema infantile [Not Recovered/Not Resolved]
  - Allergy to animal [Unknown]
  - Food allergy [Unknown]
  - Torticollis [Recovered/Resolved]
  - Mechanical urticaria [Unknown]
  - Foetal exposure during pregnancy [Unknown]

NARRATIVE: CASE EVENT DATE: 20210526
